APPROVED DRUG PRODUCT: UNIPEN
Active Ingredient: NAFCILLIN SODIUM
Strength: EQ 2GM BASE/VIAL **Federal Register determination that product was not discontinued or withdrawn for safety or effectiveness reasons**
Dosage Form/Route: INJECTABLE;INJECTION
Application: A062717 | Product #004
Applicant: WYETH AYERST LABORATORIES
Approved: Dec 16, 1986 | RLD: No | RS: No | Type: DISCN